FAERS Safety Report 5146473-0 (Version None)
Quarter: 2006Q4

REPORT INFORMATION
  Report Type: 
  Country: None (occurrence: None)
  Receive Date: 20061102
  Receipt Date: 20061026
  Transmission Date: 20070319
  Serious: Yes (Other)
  Sender: FDA-Public Use
  Company Number: HQWYE690927OCT06

PATIENT
  Age: 33 Year
  Sex: Female
  Weight: 54.48 kg

DRUGS (4)
  1. PREMPRO [Suspect]
     Indication: OOPHORECTOMY
     Dosage: 0.625MG/ 2.5MG DAILY, ORAL
     Route: 048
     Dates: start: 20061018, end: 20061022
  2. PREMARIN [Suspect]
     Indication: OOPHORECTOMY
     Dosage: INTRAVENOUS
     Route: 042
     Dates: start: 20061017
  3. MULTIVITMAINS, PLAIN (MULTIVITAMINS, PLAIN) [Concomitant]
  4. HYDROCHLOROTHIAZIDE (HYDROCHOROTHIAZIDE) [Concomitant]

REACTIONS (4)
  - FATIGUE [None]
  - MENORRHAGIA [None]
  - METRORRHAGIA [None]
  - PALLOR [None]
